FAERS Safety Report 6779242-6 (Version None)
Quarter: 2010Q2

REPORT INFORMATION
  Report Type: 
  Country: None (occurrence: None)
  Receive Date: 20100618
  Receipt Date: 20100607
  Transmission Date: 20101027
  Serious: Yes (Other)
  Sender: FDA-Public Use
  Company Number: DE-ROCHE-709169

PATIENT
  Sex: Male

DRUGS (2)
  1. ROFERON-A [Suspect]
     Indication: RENAL CELL CARCINOMA
     Route: 065
     Dates: start: 20100429
  2. AVASTIN [Concomitant]
     Indication: RENAL CELL CARCINOMA
     Dates: start: 20100429

REACTIONS (1)
  - RETINAL HAEMORRHAGE [None]
